FAERS Safety Report 14831881 (Version 1)
Quarter: 2018Q2

REPORT INFORMATION
  Report Type: Spontaneous
  Country: US (occurrence: US)
  Receive Date: 20180501
  Receipt Date: 20180501
  Transmission Date: 20180711
  Serious: Yes (Hospitalization, Other)
  Sender: FDA-Public Use
  Company Number: US-AMGEN-USASP2018057265

PATIENT
  Age: 64 Year
  Sex: Female
  Weight: 81.65 kg

DRUGS (3)
  1. ENBREL [Suspect]
     Active Substance: ETANERCEPT
     Indication: RHEUMATOID ARTHRITIS
     Dosage: UNK UNK, QWK
     Route: 065
     Dates: start: 2012
  2. XELJANZ XR [Suspect]
     Active Substance: TOFACITINIB CITRATE
     Dosage: 11 MG, QD
     Route: 048
     Dates: start: 20180416
  3. XELJANZ XR [Suspect]
     Active Substance: TOFACITINIB CITRATE
     Indication: RHEUMATOID ARTHRITIS
     Dosage: 11 MG, QD
     Route: 048
     Dates: start: 201803, end: 2018

REACTIONS (9)
  - Mycobacterium tuberculosis complex test positive [Unknown]
  - Pneumonia [Unknown]
  - Bronchitis [Unknown]
  - Decreased immune responsiveness [Unknown]
  - Meniscus injury [Unknown]
  - Rheumatoid arthritis [Not Recovered/Not Resolved]
  - Influenza [Unknown]
  - Arthropathy [Unknown]
  - Hypoacusis [Unknown]

NARRATIVE: CASE EVENT DATE: 2014
